FAERS Safety Report 8143213-8 (Version None)
Quarter: 2012Q1

REPORT INFORMATION
  Report Type: 
  Country: None (occurrence: None)
  Receive Date: 20120217
  Receipt Date: 20120215
  Transmission Date: 20120608
  Serious: No
  Sender: FDA-Public Use
  Company Number: US-PFIZER INC-2012025233

PATIENT
  Sex: Female

DRUGS (3)
  1. NIFEDIPINE [Concomitant]
     Dosage: 30 MG, UNK
  2. LEVOTHYROXINE [Concomitant]
     Indication: HYPOTHYROIDISM
     Dosage: 0.1 MG, UNK
  3. PREMARIN [Suspect]
     Dosage: 0.625 MG, 1X/DAY
     Route: 048

REACTIONS (3)
  - HOT FLUSH [None]
  - IRRITABILITY [None]
  - INSOMNIA [None]
